FAERS Safety Report 8439075-1 (Version None)
Quarter: 2012Q2

REPORT INFORMATION
  Report Type: 
  Country: None (occurrence: None)
  Receive Date: 20120615
  Receipt Date: 20120612
  Transmission Date: 20120825
  Serious: Yes (Death, Life-Threatening, Hospitalization)
  Sender: FDA-Public Use
  Company Number: US-JNJFOC-20120518942

PATIENT
  Age: 49 Year
  Sex: Female

DRUGS (9)
  1. OMEPRAZOLE [Concomitant]
     Route: 048
  2. NORTRIPTYLINE HYDROCHLORIDE [Concomitant]
     Route: 048
  3. MIRALAX [Concomitant]
     Route: 048
  4. VIIBRYD [Suspect]
     Indication: PRODUCT USED FOR UNKNOWN INDICATION
     Route: 048
  5. NUCYNTA [Suspect]
     Indication: ANALGESIC THERAPY
     Dosage: FOUR IN ONE DAY
     Route: 048
     Dates: start: 20111101
  6. TOPIRAMATE [Suspect]
     Indication: PRODUCT USED FOR UNKNOWN INDICATION
     Route: 048
  7. LOMOTIL [Concomitant]
     Route: 048
  8. CYMBALTA [Concomitant]
     Route: 048
  9. KLONOPIN [Concomitant]
     Route: 048

REACTIONS (4)
  - MULTI-ORGAN FAILURE [None]
  - ANAEMIA [None]
  - AUTOIMMUNE HEPATITIS [None]
  - MALNUTRITION [None]
